FAERS Safety Report 24032328 (Version 1)
Quarter: 2024Q2

REPORT INFORMATION
  Report Type: Report from Study
  Country: US (occurrence: US)
  Receive Date: 20240630
  Receipt Date: 20240630
  Transmission Date: 20240715
  Serious: Yes (Other)
  Sender: FDA-Public Use
  Company Number: US-ABBVIE-5819848

PATIENT
  Sex: Male

DRUGS (1)
  1. CREON [Suspect]
     Active Substance: PANCRELIPASE AMYLASE\PANCRELIPASE LIPASE\PANCRELIPASE PROTEASE
     Indication: Product used for unknown indication
     Dosage: 36000 UNITS CAPSULE. TOOK TWO CAPSULE BY MOUTH WITH MEALS AND TOOK 1 CAPSULE BY MOUTH WITH SNACKS...
     Route: 048

REACTIONS (2)
  - Chemotherapy [Unknown]
  - Hypoaesthesia [Unknown]
